FAERS Safety Report 6403767-6 (Version None)
Quarter: 2009Q4

REPORT INFORMATION
  Report Type: 
  Country: None (occurrence: None)
  Receive Date: 20091016
  Receipt Date: 20091005
  Transmission Date: 20100525
  Serious: Yes (Other)
  Sender: FDA-Public Use
  Company Number: US-PFIZER INC-2004110533

PATIENT
  Sex: Female

DRUGS (2)
  1. PREMPRO [Suspect]
     Indication: HORMONE REPLACEMENT THERAPY
     Dosage: 0625 MG, UNK
     Dates: start: 19960101, end: 20010901
  2. PHENOBARBITAL [Concomitant]
     Indication: EPILEPSY
     Dosage: UNK
     Dates: start: 19530101

REACTIONS (1)
  - BREAST CANCER FEMALE [None]
